FAERS Safety Report 14656267 (Version 1)
Quarter: 2018Q1

REPORT INFORMATION
  Report Type: Spontaneous
  Country: US (occurrence: US)
  Receive Date: 20180319
  Receipt Date: 20180319
  Transmission Date: 20180509
  Serious: Yes (Other)
  Sender: FDA-Public Use
  Company Number: US-PFIZER INC-2018107724

PATIENT
  Age: 58 Year
  Sex: Female
  Weight: 77.11 kg

DRUGS (4)
  1. MORPHINE [Concomitant]
     Active Substance: MORPHINE
     Indication: BONE CANCER
     Dosage: 30 MG TIME RELEASE TWICE A DAY
     Dates: start: 20170921
  2. IBRANCE [Suspect]
     Active Substance: PALBOCICLIB
     Indication: BONE CANCER
     Dosage: 125 MG CAPSULE ONE NIGHTLY BEFORE BED ORALLY
     Route: 048
     Dates: start: 20180222, end: 20180227
  3. IBRANCE [Suspect]
     Active Substance: PALBOCICLIB
     Indication: BREAST CANCER
  4. MORPHINE [Concomitant]
     Active Substance: MORPHINE
     Indication: BREAST CANCER

REACTIONS (1)
  - Vertigo [Recovered/Resolved]

NARRATIVE: CASE EVENT DATE: 20180222
